FAERS Safety Report 5108085-4 (Version None)
Quarter: 2006Q3

REPORT INFORMATION
  Report Type: 
  Country: None (occurrence: None)
  Receive Date: 20060915
  Receipt Date: 20060915
  Transmission Date: 20061208
  Serious: Yes (Hospitalization)
  Sender: FDA-Public Use
  Company Number: A-US2006-12724

PATIENT
  Age: 74 Year
  Sex: Female
  Weight: 78.5 kg

DRUGS (9)
  1. TRACLEER [Suspect]
     Indication: PULMONARY HYPERTENSION
     Dosage: 62.5 MG, BID; ORAL, 125 MG, BID; ORAL
     Route: 048
     Dates: start: 20060302, end: 20060427
  2. TRACLEER [Suspect]
     Indication: PULMONARY HYPERTENSION
     Dosage: 62.5 MG, BID; ORAL, 125 MG, BID; ORAL
     Route: 048
     Dates: start: 20060428, end: 20060517
  3. EZETIMIBE [Concomitant]
  4. LEXAPRO [Concomitant]
  5. WARFARIN SODIUM [Concomitant]
  6. FUROSEMIDE [Concomitant]
  7. METOPROLOL [Concomitant]
  8. POTASSIUM CHLORIDE [Concomitant]
  9. ROPINIROLE HCL [Concomitant]

REACTIONS (23)
  - ABDOMINAL DISTENSION [None]
  - ABSCESS LIMB [None]
  - ALANINE AMINOTRANSFERASE INCREASED [None]
  - ANXIETY [None]
  - ASPARTATE AMINOTRANSFERASE INCREASED [None]
  - BLOOD ALKALINE PHOSPHATASE INCREASED [None]
  - BLOOD BILIRUBIN INCREASED [None]
  - CELLULITIS [None]
  - COR PULMONALE [None]
  - DIARRHOEA [None]
  - DRY MOUTH [None]
  - DYSPNOEA EXERTIONAL [None]
  - EOSINOPHIL PERCENTAGE INCREASED [None]
  - FATIGUE [None]
  - FLUSHING [None]
  - HAEMORRHAGE [None]
  - HEADACHE [None]
  - HEPATOTOXICITY [None]
  - PROTHROMBIN TIME PROLONGED [None]
  - RESTLESS LEGS SYNDROME [None]
  - SWELLING FACE [None]
  - VASCULITIS [None]
  - WEIGHT INCREASED [None]
